FAERS Safety Report 20191322 (Version 1)
Quarter: 2021Q4

REPORT INFORMATION
  Report Type: Spontaneous
  Country: US (occurrence: US)
  Receive Date: 20211216
  Receipt Date: 20211216
  Transmission Date: 20220303
  Serious: No
  Sender: FDA-Public Use
  Company Number: US-BIOVITRUM-2021US12044

PATIENT
  Sex: Male
  Weight: 11 kg

DRUGS (5)
  1. SYNAGIS [Suspect]
     Active Substance: PALIVIZUMAB
     Indication: Congenital pulmonary valve atresia
     Route: 030
  2. EPINEPHRINE [Concomitant]
     Active Substance: EPINEPHRINE
  3. SYNAGIS [Suspect]
     Active Substance: PALIVIZUMAB
     Indication: Bundle branch block right
  4. SYNAGIS [Suspect]
     Active Substance: PALIVIZUMAB
     Indication: Postoperative care
  5. SYNAGIS [Suspect]
     Active Substance: PALIVIZUMAB
     Indication: Cardiovascular disorder

REACTIONS (4)
  - Dyspnoea [Recovered/Resolved]
  - Rhinorrhoea [Unknown]
  - Agitation [Unknown]
  - Pyrexia [Recovered/Resolved]
